FAERS Safety Report 14205522 (Version 2)
Quarter: 2017Q4

REPORT INFORMATION
  Report Type: Spontaneous
  Country: PL (occurrence: PL)
  Receive Date: 20171120
  Receipt Date: 20171127
  Transmission Date: 20180321
  Serious: Yes (Other)
  Sender: FDA-Public Use
  Company Number: PL-PFIZER INC-2017387731

PATIENT
  Age: 35 Year
  Sex: Female

DRUGS (1)
  1. DEPO-PROVERA [Suspect]
     Active Substance: MEDROXYPROGESTERONE ACETATE
     Indication: CONTRACEPTION
     Dosage: UNK

REACTIONS (5)
  - Inappropriate schedule of drug administration [Unknown]
  - Vaginal haemorrhage [Unknown]
  - Gastrointestinal fungal infection [Unknown]
  - Vulvovaginal mycotic infection [Recovered/Resolved]
  - Wrong technique in product usage process [Unknown]
